FAERS Safety Report 24077619 (Version 1)
Quarter: 2024Q3

REPORT INFORMATION
  Report Type: Spontaneous
  Country: US (occurrence: US)
  Receive Date: 20240711
  Receipt Date: 20240711
  Transmission Date: 20241016
  Serious: No
  Sender: ELI LILLY AND CO
  Company Number: US-ELI_LILLY_AND_COMPANY-US202407000777

PATIENT

DRUGS (1)
  1. TALTZ [Suspect]
     Active Substance: IXEKIZUMAB
     Indication: Product used for unknown indication
     Dosage: UNK UNK, OTHER (LOADING DOSE)
     Route: 065
     Dates: start: 20240627

REACTIONS (10)
  - Swelling face [Unknown]
  - Swelling [Unknown]
  - Pain [Unknown]
  - Feeling hot [Unknown]
  - Insomnia [Unknown]
  - Vertigo [Unknown]
  - Fatigue [Unknown]
  - Urticaria [Unknown]
  - Nausea [Unknown]
  - Injection site swelling [Not Recovered/Not Resolved]

NARRATIVE: CASE EVENT DATE: 20240627
